FAERS Safety Report 25480109 (Version 1)
Quarter: 2025Q2

REPORT INFORMATION
  Report Type: Report from Study
  Country: MX (occurrence: MX)
  Receive Date: 20250625
  Receipt Date: 20250625
  Transmission Date: 20250717
  Serious: Yes (Other)
  Sender: NOVARTIS
  Company Number: MX-002147023-NVSC2025MX090267

PATIENT
  Age: 54 Year
  Sex: Female
  Weight: 84 kg

DRUGS (9)
  1. KISQALI [Suspect]
     Active Substance: RIBOCICLIB SUCCINATE
     Indication: Breast cancer
     Dosage: 2 DOSAGE FORM, Q24H
     Route: 048
     Dates: start: 202406
  2. LETROZOLE [Concomitant]
     Active Substance: LETROZOLE
     Indication: Breast cancer
     Dosage: 1 DOSAGE FORM (1 OF 2.5 MG, TABLET)
     Route: 048
     Dates: start: 202406
  3. LEVOTHYROXINE [Concomitant]
     Active Substance: LEVOTHYROXINE
     Indication: Hypothyroidism
     Dosage: 1 DOSAGE FORM (1 OF 100 MG, TABLET), START DATE FOR 18 YEARS
     Route: 048
  4. AMLODIPINE BESYLATE\INDAPAMIDE\PERINDOPRIL ARGININE [Concomitant]
     Active Substance: AMLODIPINE BESYLATE\INDAPAMIDE\PERINDOPRIL ARGININE
     Indication: Hypertension
     Dosage: 1 DOSAGE FORM, Q8H (1 OF 5/1.35 MG, TABLET, START DATE: FOR 18 YEARS)
     Route: 048
  5. PREGABALIN [Concomitant]
     Active Substance: PREGABALIN
     Indication: Fibromyalgia
     Dosage: 1 DOSAGE FORM, Q24H (1 OF 75 MG, TABLET, FOR 15 YEARS)
     Route: 048
  6. FLUOXETINE [Concomitant]
     Active Substance: FLUOXETINE HYDROCHLORIDE
     Indication: Fibromyalgia
     Dosage: 1 DOSAGE FORM, Q24H (1 OF 20 MG, TABLET, FOR 15 YEARS)
     Route: 048
  7. CELECOXIB [Concomitant]
     Active Substance: CELECOXIB
     Indication: Lumbar hernia
     Dosage: 1 DOSAGE FORM, Q24H, (1 OF 200 MG, TABLET)
     Route: 048
     Dates: start: 2023
  8. ACETAMINOPHEN\TRAMADOL [Concomitant]
     Active Substance: ACETAMINOPHEN\TRAMADOL
     Indication: Lumbar hernia
     Dosage: 1 DOSAGE FORM (1 OF 27.5/325 MG, TABLET)
     Route: 048
  9. FISH OIL [Concomitant]
     Active Substance: FISH OIL
     Indication: Hypovitaminosis
     Dosage: 1 DOSAGE FORM, Q12H (CAPSULE)
     Route: 048
     Dates: start: 2023

REACTIONS (13)
  - Diabetes mellitus [Not Recovered/Not Resolved]
  - Body temperature increased [Unknown]
  - Glucose tolerance impaired [Recovered/Resolved]
  - Blood glucose abnormal [Unknown]
  - Hypoaesthesia [Not Recovered/Not Resolved]
  - Fatigue [Not Recovered/Not Resolved]
  - Procedural pain [Unknown]
  - Axillary pain [Not Recovered/Not Resolved]
  - Pruritus [Not Recovered/Not Resolved]
  - Pain in extremity [Not Recovered/Not Resolved]
  - Procedural site reaction [Not Recovered/Not Resolved]
  - Musculoskeletal chest pain [Not Recovered/Not Resolved]
  - Anaemia [Not Recovered/Not Resolved]

NARRATIVE: CASE EVENT DATE: 20250201
